FAERS Safety Report 7470126-7 (Version None)
Quarter: 2011Q2

REPORT INFORMATION
  Report Type: 
  Country: None (occurrence: None)
  Receive Date: 20110510
  Receipt Date: 20110331
  Transmission Date: 20111010
  Serious: Yes (Life-Threatening, Hospitalization, Disabling, Other)
  Sender: FDA-Public Use
  Company Number: A0920882A

PATIENT
  Age: 72 Year
  Sex: Male
  Weight: 65 kg

DRUGS (19)
  1. ATENOLOL [Concomitant]
     Indication: HYPERTENSION
     Dosage: 25MG PER DAY
     Route: 048
     Dates: start: 20081201
  2. CALCIUM + VITAMIN D [Concomitant]
     Dosage: 2TAB PER DAY
     Dates: start: 20000601
  3. CAPSAICIN [Concomitant]
     Route: 061
     Dates: start: 20110201, end: 20110318
  4. CILOSTAZOL [Concomitant]
     Dosage: 50MG TWICE PER DAY
     Route: 048
     Dates: start: 20090501
  5. OMEPRAZOLE [Concomitant]
     Dosage: 20MG TWICE PER DAY
     Route: 048
     Dates: start: 20050301
  6. SIMVASTATIN [Concomitant]
     Dosage: 10MG AT NIGHT
     Route: 048
     Dates: start: 19990601
  7. SEREVENT [Suspect]
     Indication: CHRONIC OBSTRUCTIVE PULMONARY DISEASE
     Dosage: 1PUFF TWICE PER DAY
     Route: 055
     Dates: start: 20110208, end: 20110318
  8. VARDENAFIL [Concomitant]
     Indication: ERECTILE DYSFUNCTION
     Dosage: 10MG AS REQUIRED
     Route: 048
     Dates: start: 20080801
  9. METFORMIN HCL [Concomitant]
     Dosage: 500MG TWICE PER DAY
     Route: 048
     Dates: start: 19980301
  10. MOMETASONE [Concomitant]
     Indication: CHRONIC OBSTRUCTIVE PULMONARY DISEASE
     Dosage: 2PUFF AT NIGHT
     Route: 055
     Dates: start: 20080201
  11. LISINOPRIL [Suspect]
     Indication: HYPERTENSION
     Dosage: 20MG PER DAY
     Route: 048
     Dates: start: 19990101, end: 20110318
  12. DUONEB [Concomitant]
     Indication: CHRONIC OBSTRUCTIVE PULMONARY DISEASE
     Dosage: 2PUFF FOUR TIMES PER DAY
     Route: 055
     Dates: start: 20080401, end: 20110412
  13. FLUNISOLIDE [Concomitant]
     Indication: CHRONIC OBSTRUCTIVE PULMONARY DISEASE
     Dosage: 4SPR TWICE PER DAY
     Route: 045
     Dates: start: 20041101
  14. NIFEDIPINE [Concomitant]
     Indication: HYPERTENSION
     Dosage: 60MG PER DAY
     Route: 048
     Dates: start: 20041101
  15. NAPROXEN [Concomitant]
     Dosage: 375MG THREE TIMES PER DAY
     Route: 048
     Dates: start: 19950101
  16. DICYCLOMINE [Concomitant]
     Dosage: 4MG FOUR TIMES PER DAY
     Route: 048
     Dates: start: 20081001
  17. FERROUS SULFATE TAB [Concomitant]
     Dosage: 325MG PER DAY
     Route: 048
     Dates: start: 20080801
  18. GABAPENTIN [Concomitant]
     Dosage: 600MG THREE TIMES PER DAY
     Route: 048
     Dates: start: 20010801
  19. ASPIRIN [Concomitant]
     Indication: PROPHYLAXIS
     Dosage: 81MG PER DAY
     Route: 048
     Dates: start: 19990201

REACTIONS (8)
  - PNEUMONIA [None]
  - BIOPSY LUNG [None]
  - CHEST X-RAY ABNORMAL [None]
  - INTERSTITIAL LUNG DISEASE [None]
  - LARYNGEAL OEDEMA [None]
  - ANGIOEDEMA [None]
  - SURGERY [None]
  - COUGH [None]
